FAERS Safety Report 7305630-5 (Version None)
Quarter: 2011Q1

REPORT INFORMATION
  Report Type: 
  Country: None (occurrence: None)
  Receive Date: 20110222
  Receipt Date: 20110215
  Transmission Date: 20110831
  Serious: Yes (Other)
  Sender: FDA-Public Use
  Company Number: US-ROCHE-734489

PATIENT
  Sex: Female
  Weight: 68 kg

DRUGS (3)
  1. ACCUTANE [Suspect]
     Indication: ACNE
     Route: 065
     Dates: start: 19990101, end: 20000101
  2. ACCUTANE [Suspect]
     Route: 065
     Dates: start: 20070101, end: 20070501
  3. ACCUTANE [Suspect]
     Route: 065
     Dates: start: 20090101, end: 20090601

REACTIONS (9)
  - CROHN'S DISEASE [None]
  - SUICIDAL IDEATION [None]
  - MENTAL DISORDER [None]
  - RECTAL HAEMORRHAGE [None]
  - ABDOMINAL PAIN [None]
  - NAUSEA [None]
  - DEPRESSION [None]
  - INFLAMMATORY BOWEL DISEASE [None]
  - ARTHRITIS [None]
